FAERS Safety Report 7290804-2 (Version None)
Quarter: 2011Q1

REPORT INFORMATION
  Report Type: 
  Country: None (occurrence: None)
  Receive Date: 20110214
  Receipt Date: 20110209
  Transmission Date: 20110831
  Serious: Yes (Hospitalization)
  Sender: FDA-Public Use
  Company Number: FR-ROCHE-758969

PATIENT
  Sex: Female

DRUGS (6)
  1. ALCOHOL [Suspect]
     Route: 048
     Dates: start: 20100506, end: 20100506
  2. LEXOMIL [Concomitant]
  3. CYMBALTA [Concomitant]
  4. MEPRONIZINE [Suspect]
     Route: 048
     Dates: start: 20100506, end: 20100506
  5. RIVOTRIL [Suspect]
     Route: 048
     Dates: start: 20100506, end: 20100506
  6. ALPRAZOLAM [Suspect]
     Route: 048
     Dates: start: 20100506, end: 20100506

REACTIONS (5)
  - TOXICITY TO VARIOUS AGENTS [None]
  - SHOCK [None]
  - COMA [None]
  - HYPOTHERMIA [None]
  - HYPOTENSION [None]
